FAERS Safety Report 5555973-0 (Version None)
Quarter: 2007Q4

REPORT INFORMATION
  Report Type: 
  Country: None (occurrence: None)
  Receive Date: 20071130
  Receipt Date: 20070816
  Transmission Date: 20080405
  Serious: No
  Sender: FDA-Public Use
  Company Number: US200708004760

PATIENT
  Sex: Male

DRUGS (2)
  1. EXENATIDE (EXENATIDE) PEN, DISPOSABLE [Suspect]
  2. EXENATIDE STRENGTH PEN, DISPOSABLE DEVICE (EXENATIDE PEN (UNKNOWN STRE [Concomitant]

REACTIONS (2)
  - DYSPNOEA [None]
  - OEDEMA PERIPHERAL [None]
